FAERS Safety Report 16570654 (Version 1)
Quarter: 2019Q3

REPORT INFORMATION
  Report Type: Spontaneous
  Country: US (occurrence: US)
  Receive Date: 20190712
  Receipt Date: 20190712
  Transmission Date: 20191004
  Serious: Yes (Other)
  Sender: FDA-Public Use
  Company Number: None

PATIENT
  Age: 35 Year
  Sex: Male
  Weight: 72 kg

DRUGS (5)
  1. COUGH DM [Suspect]
     Active Substance: DEXTROMETHORPHAN HYDROBROMIDE
     Indication: OROPHARYNGEAL PAIN
     Dosage: ?          QUANTITY:5 TABLESPOON(S);?
     Route: 048
     Dates: start: 20190702, end: 20190703
  2. COUGH DM [Suspect]
     Active Substance: DEXTROMETHORPHAN HYDROBROMIDE
     Indication: COUGH
     Dosage: ?          QUANTITY:5 TABLESPOON(S);?
     Route: 048
     Dates: start: 20190702, end: 20190703
  3. CLONAZAPAM [Concomitant]
     Active Substance: CLONAZEPAM
  4. SUPER B COMPLEX [Concomitant]
     Active Substance: CYANOCOBALAMIN\DEXPANTHENOL\NIACINAMIDE\PYRIDOXINE HYDROCHLORIDE\RIBOFLAVIN 5^-PHOSPHATE SODIUM\THIAMINE HYDROCHLORIDE\VITAMIN B COMPLEX
  5. MULTI VITAMIN [Concomitant]
     Active Substance: VITAMINS

REACTIONS (3)
  - Sleep talking [None]
  - Abnormal dreams [None]
  - Hallucination [None]

NARRATIVE: CASE EVENT DATE: 20190702
